FAERS Safety Report 5863209-6 (Version None)
Quarter: 2008Q3

REPORT INFORMATION
  Report Type: 
  Country: None (occurrence: None)
  Receive Date: 20080828
  Receipt Date: 20080821
  Transmission Date: 20090109
  Serious: Yes (Death, Other)
  Sender: FDA-Public Use
  Company Number: DE-AVENTIS-200812265DE

PATIENT
  Age: 69 Year
  Sex: Male

DRUGS (1)
  1. DOCETAXEL [Suspect]
     Dosage: DOSE: NOT REPORTED
     Route: 042
     Dates: start: 20080702, end: 20080722

REACTIONS (3)
  - DYSPNOEA [None]
  - PULMONARY EMBOLISM [None]
  - RESPIRATORY FAILURE [None]
